FAERS Safety Report 8506403-8 (Version None)
Quarter: 2012Q3

REPORT INFORMATION
  Report Type: 
  Country: None (occurrence: None)
  Receive Date: 20120712
  Receipt Date: 20120703
  Transmission Date: 20120928
  Serious: Yes (Other)
  Sender: FDA-Public Use
  Company Number: US-ASTRAZENECA-2012SE29773

PATIENT
  Age: 51 Year
  Sex: Female

DRUGS (2)
  1. SYMBICORT [Suspect]
     Dosage: 160/4.5 MCG UNKNOWN FREQUENCY
     Route: 055
  2. SYMBICORT [Suspect]
     Dosage: 80/4.5 MCG DAILY
     Route: 055

REACTIONS (7)
  - CONVULSION [None]
  - MYOCARDIAL INFARCTION [None]
  - MEMORY IMPAIRMENT [None]
  - CHRONIC OBSTRUCTIVE PULMONARY DISEASE [None]
  - CIRCULATORY COLLAPSE [None]
  - OROPHARYNGEAL PAIN [None]
  - CHEST DISCOMFORT [None]
